FAERS Safety Report 25411374 (Version 1)
Quarter: 2025Q2

REPORT INFORMATION
  Report Type: Spontaneous
  Country: US (occurrence: US)
  Receive Date: 20250609
  Receipt Date: 20250609
  Transmission Date: 20250717
  Serious: Yes (Life-Threatening, Hospitalization, Other)
  Sender: CIPLA
  Company Number: US-MLMSERVICE-20250521-PI515649-00327-2

PATIENT

DRUGS (18)
  1. PREGABALIN [Suspect]
     Active Substance: PREGABALIN
     Indication: Agitation
     Dosage: 450 MILLIGRAM, QD
     Route: 065
  2. PREGABALIN [Suspect]
     Active Substance: PREGABALIN
     Indication: Pain
  3. ISONIAZID [Suspect]
     Active Substance: ISONIAZID
     Indication: Pulmonary tuberculosis
     Route: 065
  4. LITHIUM [Suspect]
     Active Substance: LITHIUM
     Indication: Agitation
     Dosage: 600 MILLIGRAM, QD (TITRATED TO 600 MG/DAY)
     Route: 065
  5. LITHIUM [Suspect]
     Active Substance: LITHIUM
     Indication: Abnormal behaviour
     Dosage: 900 MILLIGRAM, QD
     Route: 065
  6. LITHIUM [Suspect]
     Active Substance: LITHIUM
     Indication: Aggression
  7. OXYCODONE [Suspect]
     Active Substance: OXYCODONE
     Indication: Agitation
     Route: 065
  8. OXYCODONE [Suspect]
     Active Substance: OXYCODONE
     Indication: Pain
     Dosage: UNK, QD (2.5-7.5 MG/DA)
     Route: 065
  9. VALPROIC ACID [Suspect]
     Active Substance: VALPROIC ACID
     Indication: Agitation
     Dosage: 2 GRAM, QD
     Route: 065
  10. RIFAMPIN [Concomitant]
     Active Substance: RIFAMPIN
     Indication: Pulmonary tuberculosis
     Route: 065
  11. PYRAZINAMIDE [Concomitant]
     Active Substance: PYRAZINAMIDE
     Indication: Pulmonary tuberculosis
     Route: 065
  12. ETHAMBUTOL [Concomitant]
     Active Substance: ETHAMBUTOL HYDROCHLORIDE
     Indication: Pulmonary tuberculosis
     Route: 065
  13. GUANFACINE [Concomitant]
     Active Substance: GUANFACINE
     Indication: Agitation
     Dosage: 6 MILLIGRAM, QD
     Route: 065
  14. LORAZEPAM [Concomitant]
     Active Substance: LORAZEPAM
     Indication: Agitation
     Dosage: 18 MILLIGRAM, QD
     Route: 065
  15. LORAZEPAM [Concomitant]
     Active Substance: LORAZEPAM
     Dosage: 6 MILLIGRAM, QD (SLOWLY REDUCED TO 6 MG/DAY OVER THREE WEEKS)
     Route: 065
  16. HALOPERIDOL [Concomitant]
     Active Substance: HALOPERIDOL
     Indication: Agitation
     Dosage: 15 MILLIGRAM, QD
     Route: 042
  17. RAMELTEON [Concomitant]
     Active Substance: RAMELTEON
     Indication: Sleep disorder
     Route: 065
  18. DARIDOREXANT [Concomitant]
     Active Substance: DARIDOREXANT
     Indication: Sleep disorder
     Route: 065

REACTIONS (1)
  - Serotonin syndrome [Not Recovered/Not Resolved]
